FAERS Safety Report 12184933 (Version 1)
Quarter: 2016Q1

REPORT INFORMATION
  Report Type: Spontaneous
  Country: NL (occurrence: NL)
  Receive Date: 20160316
  Receipt Date: 20160316
  Transmission Date: 20160526
  Serious: Yes (Other)
  Sender: FDA-Public Use
  Company Number: NL-ROXANE LABORATORIES, INC.-2016-RO-00464RO

PATIENT
  Age: 40 Year
  Sex: Male

DRUGS (3)
  1. PREDNISONE TABLETS USP, 5MG [Suspect]
     Active Substance: PREDNISONE
     Indication: PEMPHIGUS
     Dosage: 10 MG
     Route: 065
  2. RITUXIMAB [Suspect]
     Active Substance: RITUXIMAB
     Indication: PEMPHIGUS
     Route: 050
  3. METHOTREXATE [Suspect]
     Active Substance: METHOTREXATE
     Indication: PEMPHIGUS
     Dosage: 15 MG
     Route: 065

REACTIONS (4)
  - Rash [Unknown]
  - Nausea [Unknown]
  - Myalgia [Unknown]
  - Pyrexia [Unknown]
